FAERS Safety Report 4370364-6 (Version None)
Quarter: 2004Q2

REPORT INFORMATION
  Report Type: 
  Country: None (occurrence: None)
  Receive Date: 20040603
  Receipt Date: 20040218
  Transmission Date: 20050107
  Serious: No
  Sender: FDA-Public Use
  Company Number: US-BRISTOL-MYERS SQUIBB COMPANY-12510335

PATIENT
  Age: 10 Year
  Sex: Male
  Weight: 36 kg

DRUGS (3)
  1. ABILIFY [Suspect]
     Indication: ASPERGER'S DISORDER
     Route: 048
     Dates: start: 20040216, end: 20040217
  2. LEXAPRO [Concomitant]
  3. SEROQUEL [Concomitant]

REACTIONS (1)
  - DYSTONIA [None]
